FAERS Safety Report 23026765 (Version 1)
Quarter: 2023Q4

REPORT INFORMATION
  Report Type: Spontaneous
  Country: US (occurrence: US)
  Receive Date: 20231004
  Receipt Date: 20231004
  Transmission Date: 20240110
  Serious: No
  Sender: FDA-Public Use
  Company Number: US-JNJFOC-20230944298

PATIENT
  Age: 27 Year
  Sex: Female

DRUGS (11)
  1. TYLENOL [Suspect]
     Active Substance: ACETAMINOPHEN
     Indication: Migraine
     Route: 065
     Dates: start: 2023
  2. TYLENOL [Suspect]
     Active Substance: ACETAMINOPHEN
     Indication: Pain
  3. TYLENOL [Suspect]
     Active Substance: ACETAMINOPHEN
     Indication: Headache
  4. PROCHLORPERAZINE EDISYLATE [Concomitant]
     Active Substance: PROCHLORPERAZINE EDISYLATE
     Indication: Headache
     Route: 065
  5. REMODULIN [Concomitant]
     Active Substance: TREPROSTINIL
     Indication: Pulmonary arterial hypertension
     Dosage: 0.02056 UG/KG
     Route: 058
     Dates: start: 2023
  6. REMODULIN [Concomitant]
     Active Substance: TREPROSTINIL
     Dosage: 0.02273 UG/KG
     Route: 058
     Dates: start: 2023
  7. REMODULIN [Concomitant]
     Active Substance: TREPROSTINIL
     Dosage: 0.02489 UG/KG
     Route: 058
     Dates: start: 2023
  8. REMODULIN [Concomitant]
     Active Substance: TREPROSTINIL
     Dosage: 0.02922 UG/KG
     Route: 058
     Dates: start: 2023
  9. REMODULIN [Concomitant]
     Active Substance: TREPROSTINIL
     Dosage: CONCENTRATION 5.0 MG/ML, 0.020 UG/KG
     Route: 058
     Dates: start: 202307
  10. ADEMPAS [Concomitant]
     Active Substance: RIOCIGUAT
     Indication: Product used for unknown indication
     Route: 065
     Dates: start: 20230803
  11. AMBRISENTAN [Concomitant]
     Active Substance: AMBRISENTAN
     Indication: Product used for unknown indication
     Route: 065

REACTIONS (1)
  - Product use in unapproved indication [Unknown]

NARRATIVE: CASE EVENT DATE: 20230101
